FAERS Safety Report 8120250 (Version 7)
Quarter: 2012Q4

REPORT INFORMATION
  Report Type: 
  Country: US (occurrence: US)
  Receive Date: 20110905
  Receipt Date: 20121019
  Transmission Date: 20130627
  Serious: Yes (Death)
  Sender: FDA-Public Use
  Company Number: US-BRISTOL-MYERS SQUIBB COMPANY-15966013

PATIENT
  Age: 59 Year
  Sex: Male
  Weight: 84 kg

DRUGS (10)
  1. YERVOY [Suspect]
     Indication: MALIGNANT MELANOMA
     Dosage: No. of doses: 2, twice separated by 3 weeks also 250mg
     Route: 042
     Dates: start: 20110706, end: 20110726
  2. OMEGA-3 [Concomitant]
     Dosage: Held during/ before yervoy
  3. CO-Q-10 PLUS [Concomitant]
  4. RED YEAST RICE [Concomitant]
  5. RESTORIL [Concomitant]
     Dosage: at bed time
  6. PRILOSEC [Concomitant]
  7. LACTULOSE [Concomitant]
     Dates: start: 20110817, end: 20110818
  8. ALLOPURINOL [Concomitant]
  9. NEXIUM [Concomitant]
     Route: 042
  10. SOLU-MEDROL [Concomitant]
     Route: 042

REACTIONS (6)
  - Autoimmune hepatitis [Fatal]
  - Hepatic encephalopathy [Fatal]
  - Renal failure [Fatal]
  - Respiratory distress [Fatal]
  - Abdominal pain [Recovering/Resolving]
  - Flatulence [Recovering/Resolving]
